FAERS Safety Report 17840942 (Version 1)
Quarter: 2020Q2

REPORT INFORMATION
  Report Type: Spontaneous
  Country: US (occurrence: US)
  Receive Date: 20200529
  Receipt Date: 20200529
  Transmission Date: 20200714
  Serious: Yes (Hospitalization, Other)
  Sender: FDA-Public Use
  Company Number: US-GALDERMA-US2020025274

PATIENT
  Age: 10 Year
  Sex: Female

DRUGS (4)
  1. BROAD SPECTRUM ANTIBIOTICS [Concomitant]
     Active Substance: UNSPECIFIED INGREDIENT
     Indication: CUTANEOUS LOXOSCELISM
  2. BROAD SPECTRUM ANTIBIOTICS [Concomitant]
     Active Substance: UNSPECIFIED INGREDIENT
     Indication: SEPTIC SHOCK
  3. DOXYCYCLINE. [Suspect]
     Active Substance: DOXYCYCLINE
     Indication: SEPTIC SHOCK
     Route: 065
  4. DOXYCYCLINE. [Suspect]
     Active Substance: DOXYCYCLINE
     Indication: CUTANEOUS LOXOSCELISM

REACTIONS (7)
  - Idiopathic intracranial hypertension [Recovered/Resolved]
  - Off label use [Recovered/Resolved]
  - Diplopia [Recovered/Resolved]
  - Papilloedema [Recovered/Resolved]
  - Cranial nerve paralysis [Recovered/Resolved]
  - Intentional product use issue [Recovered/Resolved]
  - Product administered to patient of inappropriate age [Recovered/Resolved]
